FAERS Safety Report 14076169 (Version 2)
Quarter: 2017Q4

REPORT INFORMATION
  Report Type: Spontaneous
  Country: US (occurrence: US)
  Receive Date: 20171010
  Receipt Date: 20171113
  Transmission Date: 20180321
  Serious: Yes (Death, Hospitalization, Other)
  Sender: FDA-Public Use
  Company Number: US-009507513-1710USA004992

PATIENT
  Age: 55 Year
  Sex: Female

DRUGS (9)
  1. FLUORESCEIN [Concomitant]
     Active Substance: FLUORESCEIN
     Dosage: UNK
     Route: 037
  2. CIPROFLOXACIN. [Suspect]
     Active Substance: CIPROFLOXACIN
     Indication: MENINGITIS BACTERIAL
     Dosage: UNK
  3. ETOMIDATE. [Concomitant]
     Active Substance: ETOMIDATE
     Indication: CORTISOL INCREASED
     Dosage: UNK
  4. HYDROCORTONE [Suspect]
     Active Substance: HYDROCORTISONE
     Dosage: 50 MG, BID. LONG TERM
     Route: 048
  5. CEFUROXIME. [Suspect]
     Active Substance: CEFUROXIME
     Indication: INFECTION PROPHYLAXIS
     Dosage: INTRAOPERATIVELY FOLLOWED BY ADDITIONAL 24 HOURS
  6. HYDROCORTONE [Suspect]
     Active Substance: HYDROCORTISONE
     Indication: ADENOMA BENIGN
     Dosage: 50 MG, QID
     Route: 048
  7. MEROPENEM. [Suspect]
     Active Substance: MEROPENEM
     Indication: MENINGITIS BACTERIAL
     Dosage: UNK
  8. HYDROCORTONE [Suspect]
     Active Substance: HYDROCORTISONE
     Dosage: 50 MG, TID
     Route: 048
  9. METRONIDAZOLE. [Suspect]
     Active Substance: METRONIDAZOLE
     Indication: INFECTION PROPHYLAXIS
     Dosage: UNK

REACTIONS (2)
  - Product use in unapproved indication [Unknown]
  - Meningitis candida [Fatal]
